FAERS Safety Report 8612292-3 (Version None)
Quarter: 2012Q3

REPORT INFORMATION
  Report Type: 
  Country: None (occurrence: None)
  Receive Date: 20120810
  Receipt Date: 20120810
  Transmission Date: 20120928
  Serious: Yes (Hospitalization)
  Sender: FDA-Public Use
  Company Number: None

PATIENT
  Sex: Male
  Weight: 104.3273 kg

DRUGS (2)
  1. CYMBALTA [Suspect]
     Indication: ANXIETY
     Dosage: 1 DAILY PO
     Route: 048
     Dates: start: 20120709, end: 20120801
  2. CYMBALTA [Suspect]
     Indication: ANXIETY
     Dosage: 1 DAILY PO
     Route: 048
     Dates: start: 20120701, end: 20120708

REACTIONS (7)
  - PHARYNGITIS STREPTOCOCCAL [None]
  - INFLUENZA LIKE ILLNESS [None]
  - SUICIDE ATTEMPT [None]
  - TONSILLITIS [None]
  - STOMATITIS [None]
  - HYPERHIDROSIS [None]
  - MUSCULOSKELETAL STIFFNESS [None]
